FAERS Safety Report 20684808 (Version 1)
Quarter: 2022Q2

REPORT INFORMATION
  Report Type: Spontaneous
  Country: CN (occurrence: CN)
  Receive Date: 20220407
  Receipt Date: 20220407
  Transmission Date: 20220720
  Serious: Yes (Hospitalization)
  Sender: FDA-Public Use
  Company Number: CN-PFIZER INC-202200506508

PATIENT
  Age: 35 Year
  Sex: Male
  Weight: 68 kg

DRUGS (3)
  1. METHOTREXATE [Suspect]
     Active Substance: METHOTREXATE
     Indication: Non-Hodgkin^s lymphoma
     Dosage: 300 MG, 1X/DAY
     Dates: start: 20220222, end: 20220222
  2. METHOTREXATE [Suspect]
     Active Substance: METHOTREXATE
     Dosage: 1500 MG, 1X/DAY
     Dates: start: 20220222, end: 20220222
  3. CYTARABINE [Suspect]
     Active Substance: CYTARABINE
     Indication: Non-Hodgkin^s lymphoma
     Dosage: 3.5 G, 2X/DAY
     Dates: start: 20220223, end: 20220225

REACTIONS (3)
  - Myelosuppression [Recovering/Resolving]
  - Platelet count decreased [Recovering/Resolving]
  - Full blood count decreased [Recovering/Resolving]

NARRATIVE: CASE EVENT DATE: 20220310
